FAERS Safety Report 14882677 (Version 1)
Quarter: 2018Q2

REPORT INFORMATION
  Report Type: Spontaneous
  Country: US (occurrence: US)
  Receive Date: 20180511
  Receipt Date: 20180511
  Transmission Date: 20180711
  Serious: No
  Sender: FDA-Public Use
  Company Number: US-SHIONOGI, INC-2018000079

PATIENT
  Age: 59 Year
  Sex: Male
  Weight: 108.84 kg

DRUGS (2)
  1. MS CONTIN [Concomitant]
     Active Substance: MORPHINE SULFATE
     Indication: INTERVERTEBRAL DISC DEGENERATION
     Dosage: 15 MG, BID
     Route: 048
  2. SYMPROIC [Suspect]
     Active Substance: NALDEMEDINE
     Indication: CONSTIPATION
     Dosage: 0.2 MG, UNK
     Route: 048
     Dates: start: 20171218, end: 20180115

REACTIONS (4)
  - Drug withdrawal syndrome [Recovered/Resolved]
  - Hyperhidrosis [Unknown]
  - Diarrhoea [Recovered/Resolved]
  - Chills [Recovered/Resolved]

NARRATIVE: CASE EVENT DATE: 20180110
